FAERS Safety Report 17488430 (Version 1)
Quarter: 2020Q1

REPORT INFORMATION
  Report Type: Spontaneous
  Country: US (occurrence: US)
  Receive Date: 20200302
  Receipt Date: 20200302
  Transmission Date: 20200409
  Serious: Yes (Other)
  Sender: FDA-Public Use
  Company Number: None

PATIENT
  Age: 41 Year
  Sex: Male
  Weight: 100 kg

DRUGS (8)
  1. SPIRIVA 1.252 PUFFS DAILY [Concomitant]
  2. FLONASE [Concomitant]
     Active Substance: FLUTICASONE PROPIONATE
  3. DUPILUMAB [Suspect]
     Active Substance: DUPILUMAB
     Indication: ASTHMA
     Route: 058
     Dates: start: 20200216
  4. ALBUTEROL. [Concomitant]
     Active Substance: ALBUTEROL
  5. DUPILUMAB [Suspect]
     Active Substance: DUPILUMAB
     Indication: NASAL POLYPS
     Route: 058
     Dates: start: 20200216
  6. METHYLPREDNISOLONE 4MG DAILY [Concomitant]
  7. DULERA 200 2 PUFFS BID [Concomitant]
  8. PIMOZIDE. [Concomitant]
     Active Substance: PIMOZIDE

REACTIONS (1)
  - Tourette^s disorder [None]

NARRATIVE: CASE EVENT DATE: 20200216
